FAERS Safety Report 14277563 (Version 1)
Quarter: 2017Q4

REPORT INFORMATION
  Report Type: Spontaneous
  Country: CH (occurrence: CH)
  Receive Date: 20171212
  Receipt Date: 20171212
  Transmission Date: 20180321
  Serious: Yes (Disabling)
  Sender: FDA-Public Use
  Company Number: CH-AMGEN-CHESP2017182454

PATIENT
  Age: 41 Year
  Sex: Male

DRUGS (10)
  1. VALTREX [Concomitant]
     Active Substance: VALACYCLOVIR HYDROCHLORIDE
     Indication: INFECTION PROPHYLAXIS
     Dosage: 500 MG, TID
     Route: 048
  2. MABTHERA [Concomitant]
     Active Substance: RITUXIMAB
     Dosage: UNK
     Dates: start: 20170912, end: 20170915
  3. DIFLUCAN [Concomitant]
     Active Substance: FLUCONAZOLE
     Dosage: 200 MG, QWK
     Route: 048
  4. NOVORAPID [Concomitant]
     Active Substance: INSULIN ASPART
     Dosage: UNK (100 U/ 1 ML)
     Route: 058
  5. NEULASTA [Suspect]
     Active Substance: PEGFILGRASTIM
     Indication: BONE MARROW FAILURE
     Dosage: UNK (6 MG/0.6 ML)
     Route: 058
     Dates: start: 20170917, end: 20170917
  6. CYTARABIN [Concomitant]
     Active Substance: CYTARABINE
     Indication: LYMPHOMA
     Dosage: UNK
     Dates: start: 20170912, end: 20170915
  7. BACTRIM [Concomitant]
     Active Substance: SULFAMETHOXAZOLE\TRIMETHOPRIM
     Indication: INFECTION PROPHYLAXIS
     Dosage: UNK (800/160 MG ORALLY 1 X EVERY 3 DAYS)
     Route: 048
  8. PANTOPRAZOL [Concomitant]
     Active Substance: PANTOPRAZOLE SODIUM
     Dosage: 20 MG, QD
  9. METHOTREXATE (METHOTREXATE SODIUM) [Concomitant]
     Active Substance: METHOTREXATE SODIUM
     Indication: LYMPHOMA
     Dosage: UNK
     Dates: start: 20170912, end: 20170915
  10. TEPADINA [Concomitant]
     Active Substance: THIOTEPA
     Indication: LYMPHOMA
     Dosage: UNK
     Dates: start: 20170912, end: 20170915

REACTIONS (1)
  - Pelvic pain [Recovering/Resolving]

NARRATIVE: CASE EVENT DATE: 20170923
